FAERS Safety Report 10039816 (Version 2)
Quarter: 2014Q2

REPORT INFORMATION
  Report Type: Spontaneous
  Country: US (occurrence: US)
  Receive Date: 20140326
  Receipt Date: 20140502
  Transmission Date: 20141212
  Serious: Yes (Hospitalization)
  Sender: FDA-Public Use
  Company Number: US-JNJFOC-20140309792

PATIENT
  Age: 31 Year
  Sex: Male

DRUGS (1)
  1. INVEGA SUSTENNA [Suspect]
     Indication: SCHIZOPHRENIA
     Route: 042
     Dates: start: 201402

REACTIONS (7)
  - Schizoaffective disorder bipolar type [Recovered/Resolved]
  - Psychotic disorder [Recovered/Resolved]
  - Extrapyramidal disorder [Recovered/Resolved]
  - Substance abuse [Unknown]
  - Swollen tongue [Recovered/Resolved]
  - Drug administration error [Unknown]
  - Incorrect route of drug administration [Unknown]
